FAERS Safety Report 24973317 (Version 1)
Quarter: 2025Q1

REPORT INFORMATION
  Report Type: Spontaneous
  Country: GB (occurrence: GB)
  Receive Date: 20250216
  Receipt Date: 20250216
  Transmission Date: 20250409
  Serious: Yes (Disabling, Other)
  Sender: ABBVIE
  Company Number: None

PATIENT

DRUGS (2)
  1. BOTOX [Suspect]
     Active Substance: ONABOTULINUMTOXINA
     Indication: Skin wrinkling
     Route: 065
     Dates: start: 20241218, end: 20241218
  2. BOTOX [Suspect]
     Active Substance: ONABOTULINUMTOXINA
     Indication: Skin wrinkling
     Route: 065
     Dates: start: 20241219, end: 20241219

REACTIONS (5)
  - Scar [Not Recovered/Not Resolved]
  - Skin infection [Not Recovered/Not Resolved]
  - Swelling face [Not Recovered/Not Resolved]
  - Purpura [Unknown]
  - Medication error [Unknown]

NARRATIVE: CASE EVENT DATE: 20241218
